FAERS Safety Report 14937941 (Version 1)
Quarter: 2018Q2

REPORT INFORMATION
  Report Type: Spontaneous
  Country: HR (occurrence: HR)
  Receive Date: 20180525
  Receipt Date: 20180525
  Transmission Date: 20180711
  Serious: Yes (Other)
  Sender: FDA-Public Use
  Company Number: HR-TEVA-2018-HR-895868

PATIENT
  Age: 42 Year
  Sex: Male

DRUGS (4)
  1. NORMABEL [Suspect]
     Active Substance: DIAZEPAM
     Indication: SCHIZOPHRENIA
     Route: 065
     Dates: start: 201403
  2. RISPERIDONE. [Suspect]
     Active Substance: RISPERIDONE
     Indication: SCHIZOPHRENIA
     Route: 048
     Dates: start: 201403
  3. RISPERDAL CONSTA [Suspect]
     Active Substance: RISPERIDONE
     Route: 030
     Dates: start: 201404
  4. RISPERDAL CONSTA [Suspect]
     Active Substance: RISPERIDONE
     Indication: SCHIZOPHRENIA
     Route: 030
     Dates: start: 201403, end: 201404

REACTIONS (1)
  - Psychotic symptom [Recovered/Resolved]

NARRATIVE: CASE EVENT DATE: 20140428
